FAERS Safety Report 5059954-5 (Version None)
Quarter: 2006Q3

REPORT INFORMATION
  Report Type: 
  Country: None (occurrence: None)
  Receive Date: 20060719
  Receipt Date: 20060714
  Transmission Date: 20061208
  Serious: Yes (Hospitalization)
  Sender: FDA-Public Use
  Company Number: 2006P1000325

PATIENT
  Age: 62 Year
  Sex: Male

DRUGS (4)
  1. RETEPLASE              (RETEPLASE) [Suspect]
     Indication: ACUTE MYOCARDIAL INFARCTION
     Dosage: 5 IU;X2;IV
     Route: 042
     Dates: start: 20060528, end: 20060528
  2. REOPRO [Suspect]
     Indication: ACUTE MYOCARDIAL INFARCTION
     Dosage: SEE IMAGE
     Route: 042
     Dates: start: 20060528, end: 20060528
  3. REOPRO [Suspect]
     Indication: ACUTE MYOCARDIAL INFARCTION
     Dosage: SEE IMAGE
     Route: 042
     Dates: start: 20060528, end: 20060528
  4. HEPARIN [Concomitant]

REACTIONS (1)
  - ANGINA PECTORIS [None]
